FAERS Safety Report 5128488-1 (Version None)
Quarter: 2006Q3

REPORT INFORMATION
  Report Type: 
  Country: None (occurrence: None)
  Receive Date: 20060926
  Receipt Date: 20060426
  Transmission Date: 20061208
  Serious: Yes (Hospitalization)
  Sender: FDA-Public Use
  Company Number: A06-014

PATIENT
  Age: 44 Year
  Sex: Female
  Weight: 136.5327 kg

DRUGS (1)
  1. ALLERGENIC EXTRACT, MITE MIXED [Suspect]
     Dosage: SUB CU
     Route: 058

REACTIONS (2)
  - ADVERSE DRUG REACTION [None]
  - BLOOD PRESSURE DECREASED [None]
